FAERS Safety Report 17999250 (Version 2)
Quarter: 2020Q3

REPORT INFORMATION
  Report Type: Report from Study
  Country: CO (occurrence: CO)
  Receive Date: 20200709
  Receipt Date: 20200713
  Transmission Date: 20201103
  Serious: Yes (Hospitalization)
  Sender: FDA-Public Use
  Company Number: NVSC2020CO193139

PATIENT
  Age: 63 Year
  Sex: Female
  Weight: 78 kg

DRUGS (7)
  1. SERTRALINE [Suspect]
     Active Substance: SERTRALINE HYDROCHLORIDE
     Indication: STRESS
  2. SATOREN H [Concomitant]
     Indication: HYPERTENSION
     Dosage: 1 DF, QD (100/ 25 MG)
     Route: 048
  3. ACETAMINOPHEN. [Concomitant]
     Active Substance: ACETAMINOPHEN
     Indication: SPINAL PAIN
     Dosage: 500 MG, PRN
     Route: 048
  4. TAZEPIN [Concomitant]
     Indication: ANXIETY
     Dosage: 30 MG, QD
     Route: 048
  5. SERTRALINE [Suspect]
     Active Substance: SERTRALINE HYDROCHLORIDE
     Indication: ANXIETY
     Dosage: 5 MG, QD
     Route: 048
  6. TAZEPIN [Concomitant]
     Indication: STRESS
  7. ATORVASTATIN [Suspect]
     Active Substance: ATORVASTATIN
     Indication: BLOOD TRIGLYCERIDES ABNORMAL
     Dosage: 40 MG, QD
     Route: 048

REACTIONS (3)
  - Idiopathic urticaria [Unknown]
  - Pruritus [Recovering/Resolving]
  - Urticaria [Recovering/Resolving]

NARRATIVE: CASE EVENT DATE: 20200508
